FAERS Safety Report 8231483-7 (Version None)
Quarter: 2012Q1

REPORT INFORMATION
  Report Type: 
  Country: None (occurrence: None)
  Receive Date: 20120323
  Receipt Date: 20120315
  Transmission Date: 20120608
  Serious: Yes (Other)
  Sender: FDA-Public Use
  Company Number: PHEH2012US005964

PATIENT
  Sex: Female

DRUGS (5)
  1. VICODIN [Concomitant]
  2. EXFORGE [Suspect]
     Dosage: 1 DF (320/10 MG), QD
  3. BILBERRY [Concomitant]
  4. HERBAL PREPARATION [Concomitant]
  5. VITAMIN D [Concomitant]

REACTIONS (4)
  - VISION BLURRED [None]
  - CATARACT [None]
  - DIZZINESS [None]
  - ARTHRITIS [None]
